FAERS Safety Report 8336085-X (Version None)
Quarter: 2012Q2

REPORT INFORMATION
  Report Type: 
  Country: None (occurrence: None)
  Receive Date: 20120501
  Receipt Date: 20120501
  Transmission Date: 20120825
  Serious: Yes (Hospitalization)
  Sender: FDA-Public Use
  Company Number: None

PATIENT
  Age: 79 Year
  Sex: Male
  Weight: 57.2 kg

DRUGS (9)
  1. METOPROLOL TARTRATE [Concomitant]
  2. SENNA-MINT WAF [Concomitant]
  3. VIACTIV [Concomitant]
  4. BENICAR [Concomitant]
  5. NITROSTAT [Concomitant]
  6. NORVASC [Concomitant]
  7. ASPIRIN [Suspect]
     Dosage: 81MG DAILY PO CHRONIC
     Route: 048
  8. FERROUS SULFATE TAB [Concomitant]
  9. APAP TAB [Concomitant]

REACTIONS (2)
  - GASTRITIS [None]
  - MELAENA [None]
